FAERS Safety Report 5406829-5 (Version None)
Quarter: 2007Q3

REPORT INFORMATION
  Report Type: 
  Country: None (occurrence: None)
  Receive Date: 20070802
  Receipt Date: 20070718
  Transmission Date: 20080115
  Serious: Yes (Death)
  Sender: FDA-Public Use
  Company Number: 000#5#2007-00216

PATIENT
  Age: 65 Year
  Sex: Male

DRUGS (7)
  1. ROTIGOTINE (DOSE UNKNOWN), PATCH (SILICONE) (ROTIGOTINE) [Suspect]
     Indication: PARKINSON'S DISEASE
     Dosage: 16 MG/24H (16 MG/24H 1 IN 1 DAY (S)) TRANSDERMAL
     Route: 062
     Dates: start: 20041210, end: 20070706
  2. AMANTADINE HCL [Concomitant]
  3. CILAZAPRIL (CILAZAPRIL) [Concomitant]
  4. CARBIDOPA, LEVODOPA (CARBIDOPA, LEVODOPA) [Concomitant]
  5. PENTOXIFYLLINE [Concomitant]
  6. PROPRANOLOL [Concomitant]
  7. ZOLPIDEM TARTRATE [Concomitant]

REACTIONS (2)
  - LOSS OF CONSCIOUSNESS [None]
  - MYOCARDIAL INFARCTION [None]
